FAERS Safety Report 14973477 (Version 13)
Quarter: 2023Q2

REPORT INFORMATION
  Report Type: Spontaneous
  Country: JP (occurrence: JP)
  Receive Date: 20180605
  Receipt Date: 20230508
  Transmission Date: 20230722
  Serious: Yes (Other)
  Sender: FDA-Public Use
  Company Number: JP-PFIZER INC-2018000553

PATIENT
  Age: 14 Year
  Sex: Female
  Weight: 43.4 kg

DRUGS (11)
  1. SIROLIMUS [Suspect]
     Active Substance: SIROLIMUS
     Indication: Lymphangioma
     Dosage: 1 MG, DAILY
     Route: 048
     Dates: start: 20170316, end: 20170502
  2. SIROLIMUS [Suspect]
     Active Substance: SIROLIMUS
     Dosage: 1.5 MG, DAILY
     Route: 048
     Dates: start: 20170503, end: 20170519
  3. SIROLIMUS [Suspect]
     Active Substance: SIROLIMUS
     Dosage: 1 MG, DAILY
     Route: 048
     Dates: start: 20170622, end: 20170919
  4. SIROLIMUS [Suspect]
     Active Substance: SIROLIMUS
     Dosage: 0.5 MG, DAILY
     Route: 048
     Dates: start: 20170920, end: 20171104
  5. PROPRANOLOL HYDROCHLORIDE [Suspect]
     Active Substance: PROPRANOLOL HYDROCHLORIDE
     Indication: Lymphangioma
     Dosage: 90 MG, DAILY
     Route: 048
     Dates: start: 20170516, end: 20170615
  6. HERBALS [Suspect]
     Active Substance: HERBALS
     Indication: Lymphangioma
     Dosage: 7.5 G, 1X/DAY
     Route: 048
     Dates: start: 20170619, end: 20170913
  7. FUROSEMIDE [Concomitant]
     Active Substance: FUROSEMIDE
     Dosage: UNK
     Route: 048
     Dates: start: 20170213
  8. SPIRONOLACTONE [Concomitant]
     Active Substance: SPIRONOLACTONE
     Dosage: UNK
     Route: 048
     Dates: start: 20170913
  9. SULFAMETHOXAZOLE\TRIMETHOPRIM [Concomitant]
     Active Substance: SULFAMETHOXAZOLE\TRIMETHOPRIM
     Dosage: UNK
     Route: 065
  10. OCTREOTIDE [Concomitant]
     Active Substance: OCTREOTIDE
     Indication: Lymphangioma
     Dosage: UNK
     Route: 049
     Dates: start: 20170227, end: 20170312
  11. HACHIAZULE [Concomitant]
     Dosage: UNK
     Route: 049

REACTIONS (9)
  - Sepsis [Recovered/Resolved]
  - Liver disorder [Unknown]
  - Vomiting [Recovered/Resolved]
  - Stomatitis [Recovered/Resolved]
  - Impaired healing [Recovered/Resolved]
  - Off label use [Unknown]
  - Nausea [Unknown]
  - Vomiting [Unknown]
  - Diarrhoea [Unknown]

NARRATIVE: CASE EVENT DATE: 20170101
